FAERS Safety Report 4929834-1 (Version None)
Quarter: 2006Q1

REPORT INFORMATION
  Report Type: 
  Country: None (occurrence: None)
  Receive Date: 20060224
  Receipt Date: 20060124
  Transmission Date: 20060701
  Serious: Yes (Other)
  Sender: FDA-Public Use
  Company Number: US-2006-003485

PATIENT
  Age: 72 Year
  Sex: Female
  Weight: 61.2 kg

DRUGS (12)
  1. ULTRAVIST (PHARMACY BULK) [Suspect]
     Indication: ANGIOGRAM
     Dosage: 100 ML, 1 DOSE, INTRAVENOUS
     Route: 042
     Dates: start: 20060123, end: 20060123
  2. ULTRAVIST (PHARMACY BULK) [Suspect]
     Indication: ARTERIOGRAM CORONARY
     Dosage: 100 ML, 1 DOSE, INTRAVENOUS
     Route: 042
     Dates: start: 20060123, end: 20060123
  3. AMBIEN (ZOLPIDEM TATRATE) [Concomitant]
  4. NORVASC [Concomitant]
  5. AMLODIPINE BESYLATE [Concomitant]
  6. ASPIRIN [Concomitant]
  7. ATENOLOL [Concomitant]
  8. CENTRUM (VITAMINS NOS, MINERALS NOS) [Concomitant]
  9. NABUMETONE [Concomitant]
  10. OYSTER SHELL CALCIUM [Concomitant]
  11. VLASARTAN (VALSARTAN) [Concomitant]
  12. ZETIA [Concomitant]

REACTIONS (7)
  - BLOOD PRESSURE DECREASED [None]
  - CIRCUMORAL OEDEMA [None]
  - CONTRAST MEDIA REACTION [None]
  - EAR PAIN [None]
  - ERYTHEMA [None]
  - EYE SWELLING [None]
  - SWELLING FACE [None]
